FAERS Safety Report 20755357 (Version 1)
Quarter: 2022Q2

REPORT INFORMATION
  Report Type: Spontaneous
  Country: CN (occurrence: CN)
  Receive Date: 20220427
  Receipt Date: 20220427
  Transmission Date: 20220721
  Serious: Yes (Life-Threatening, Hospitalization)
  Sender: FDA-Public Use
  Company Number: CN-LUPIN PHARMACEUTICALS INC.-2022-06130

PATIENT
  Age: 56 Year
  Sex: Male

DRUGS (5)
  1. ALBUTEROL SULFATE [Suspect]
     Active Substance: ALBUTEROL SULFATE
     Indication: Respiratory distress
     Dosage: UNK NEBULISED
  2. IPRATROPIUM BROMIDE [Suspect]
     Active Substance: IPRATROPIUM BROMIDE
     Indication: Respiratory distress
     Dosage: UNK
     Route: 065
  3. CISATRACURIUM [Suspect]
     Active Substance: CISATRACURIUM
     Indication: Respiratory distress
     Dosage: UNK
     Route: 042
  4. CISATRACURIUM [Suspect]
     Active Substance: CISATRACURIUM
     Indication: Muscle relaxant therapy
  5. MAGNESIUM SULFATE [Suspect]
     Active Substance: MAGNESIUM SULFATE
     Indication: Respiratory distress
     Dosage: UNK
     Route: 042

REACTIONS (1)
  - Treatment failure [Unknown]
